FAERS Safety Report 19532719 (Version 3)
Quarter: 2022Q1

REPORT INFORMATION
  Report Type: Spontaneous
  Country: CA (occurrence: CA)
  Receive Date: 20210713
  Receipt Date: 20220331
  Transmission Date: 20220423
  Serious: Yes (Life-Threatening, Other)
  Sender: FDA-Public Use
  Company Number: CA-AMERICAN REGENT INC-2021001753

PATIENT
  Age: 91 Year
  Sex: Male

DRUGS (1)
  1. VENOFER [Suspect]
     Active Substance: IRON SUCROSE
     Indication: Anaemia
     Dosage: 300 MG, 1 EVERY 1 DAYS
     Route: 042
     Dates: start: 20210218, end: 20210220

REACTIONS (1)
  - Drug hypersensitivity [Recovering/Resolving]

NARRATIVE: CASE EVENT DATE: 20210218
